FAERS Safety Report 7250452-7 (Version None)
Quarter: 2011Q1

REPORT INFORMATION
  Report Type: 
  Country: None (occurrence: None)
  Receive Date: 20110121
  Receipt Date: 20110121
  Transmission Date: 20110831
  Serious: Yes (Hospitalization)
  Sender: FDA-Public Use
  Company Number: None

PATIENT
  Age: 48 Year
  Sex: Male
  Weight: 146 kg

DRUGS (2)
  1. WARFARIN SODIUM [Suspect]
     Indication: PULMONARY EMBOLISM
     Dosage: 7.5 MG EVERY DAY PO
     Route: 048
     Dates: start: 20100824, end: 20100904
  2. ENOXAPARIN SODIUM [Suspect]
     Indication: PULMONARY EMBOLISM
     Dosage: 150 MG BID SQ
     Route: 058
     Dates: start: 20100819, end: 20100903

REACTIONS (1)
  - ABDOMINAL WALL HAEMATOMA [None]
